FAERS Safety Report 9302787 (Version 1)
Quarter: 2013Q2

REPORT INFORMATION
  Report Type: Spontaneous
  Country: US (occurrence: US)
  Receive Date: 20130522
  Receipt Date: 20130522
  Transmission Date: 20140414
  Serious: Yes (Hospitalization, Other)
  Sender: FDA-Public Use
  Company Number: US-BAYER-2013-060815

PATIENT
  Age: 17 Year
  Sex: Female
  Weight: 116.37 kg

DRUGS (6)
  1. YAZ [Suspect]
  2. CEPHALEXIN [Concomitant]
     Dosage: 500 MG, UNK
  3. NAPROXEN [Concomitant]
     Dosage: 500 MG, UNK
  4. MAXAIR [Concomitant]
     Dosage: 0.2 MG, UNK
     Route: 045
  5. ADVIL [Concomitant]
  6. NAPROSYN [Concomitant]
     Indication: BACK PAIN

REACTIONS (2)
  - Deep vein thrombosis [Recovered/Resolved]
  - Cholelithiasis [None]
